FAERS Safety Report 6279304-6 (Version None)
Quarter: 2009Q3

REPORT INFORMATION
  Report Type: 
  Country: None (occurrence: None)
  Receive Date: 20090723
  Receipt Date: 20080916
  Transmission Date: 20100115
  Serious: No
  Sender: FDA-Public Use
  Company Number: US-AMGEN-KDL308461

PATIENT
  Sex: Male
  Weight: 104.4 kg

DRUGS (3)
  1. PROCRIT [Suspect]
     Indication: PRE-EXISTING DISEASE
     Route: 058
     Dates: start: 20080101
  2. PEGASYS [Concomitant]
     Route: 058
     Dates: start: 20080401
  3. RIBAVIRIN [Concomitant]
     Dates: start: 20080401

REACTIONS (3)
  - DYSPNOEA [None]
  - FATIGUE [None]
  - THERAPEUTIC RESPONSE DECREASED [None]
